FAERS Safety Report 20520534 (Version 5)
Quarter: 2022Q3

REPORT INFORMATION
  Report Type: Spontaneous
  Country: US (occurrence: US)
  Receive Date: 20220225
  Receipt Date: 20220801
  Transmission Date: 20221026
  Serious: No
  Sender: FDA-Public Use
  Company Number: US-PFIZER INC-202200165792

PATIENT
  Age: 15 Year
  Sex: Male
  Weight: 62.6 kg

DRUGS (4)
  1. GENOTROPIN [Suspect]
     Active Substance: SOMATROPIN
     Indication: Blood growth hormone
     Dosage: 12MG, 2.4 INJECTED DAILY
     Dates: start: 202201
  2. GENOTROPIN [Suspect]
     Active Substance: SOMATROPIN
     Indication: Growth disorder
     Dosage: 12MG, 2.4 INJECTED DAILY
     Dates: start: 202201
  3. GENOTROPIN [Suspect]
     Active Substance: SOMATROPIN
     Indication: Short stature
     Dosage: 2.4 MG, DAILY
  4. GENOTROPIN [Suspect]
     Active Substance: SOMATROPIN
     Dosage: 2.2 MG, DAILY
     Route: 058

REACTIONS (3)
  - Device leakage [Unknown]
  - Device breakage [Unknown]
  - Drug dose omission by device [Unknown]

NARRATIVE: CASE EVENT DATE: 20220101
